FAERS Safety Report 6100201-0 (Version None)
Quarter: 2009Q1

REPORT INFORMATION
  Report Type: 
  Country: None (occurrence: None)
  Receive Date: 20090303
  Receipt Date: 20090218
  Transmission Date: 20090719
  Serious: Yes (Death, Other)
  Sender: FDA-Public Use
  Company Number: JP-ROCHE-616189

PATIENT
  Age: 67 Year
  Sex: Male

DRUGS (4)
  1. CELLCEPT [Suspect]
     Indication: PROPHYLAXIS AGAINST TRANSPLANT REJECTION
     Route: 048
     Dates: start: 20070101
  2. SIMULECT [Concomitant]
     Dosage: ROUTE: INTRAVENOUS (NOS)
     Route: 042
     Dates: start: 20070101
  3. MEDROL [Concomitant]
     Route: 048
     Dates: start: 20070101
  4. CYCLOSPORINE [Concomitant]
     Dosage: FORM: ORAL FORMULATION (NOS)
     Route: 048
     Dates: start: 20070101

REACTIONS (2)
  - CARDIAC FAILURE [None]
  - TUBERCULOSIS [None]
